FAERS Safety Report 7054107 (Version 4)
Quarter: 2012Q4

REPORT INFORMATION
  Report Type: Report from Study
  Country: ES (occurrence: ES)
  Receive Date: 20090717
  Receipt Date: 20121203
  Transmission Date: 20130627
  Serious: Yes (Disabling)
  Sender: FDA-Public Use
  Company Number: ES-ABBOTT-09P-144-0584020-00

PATIENT
  Age: 41 Year
  Sex: Female
  Weight: 42 kg

DRUGS (2)
  1. HUMIRA [Suspect]
     Indication: CROHN^S DISEASE
     Route: 058
     Dates: start: 20081106, end: 20090415
  2. IMUREL [Concomitant]
     Indication: CROHN^S DISEASE
     Dates: start: 200705

REACTIONS (1)
  - Alopecia [Not Recovered/Not Resolved]
